FAERS Safety Report 6383239-8 (Version None)
Quarter: 2009Q3

REPORT INFORMATION
  Report Type: 
  Country: None (occurrence: None)
  Receive Date: 20090929
  Receipt Date: 20090915
  Transmission Date: 20100115
  Serious: Yes (Hospitalization)
  Sender: FDA-Public Use
  Company Number: CERZ-1000927

PATIENT
  Age: 30 Year
  Sex: Female

DRUGS (1)
  1. CEREZYME [Suspect]
     Indication: GAUCHER'S DISEASE
     Dates: start: 19970101

REACTIONS (10)
  - BONE DISORDER [None]
  - BONE INFARCTION [None]
  - DEHYDRATION [None]
  - FALL [None]
  - IMPAIRED HEALING [None]
  - INFUSION RELATED REACTION [None]
  - LOSS OF CONSCIOUSNESS [None]
  - OSTEONECROSIS [None]
  - PAIN [None]
  - SKIN MASS [None]
